FAERS Safety Report 8404216 (Version 2)
Quarter: 2013Q2

REPORT INFORMATION
  Report Type: Spontaneous
  Country: US (occurrence: None)
  Receive Date: 20111227
  Receipt Date: 20130107
  Transmission Date: 20140414
  Serious: No
  Sender: FDA-Public Use
  Company Number: PHEH2011US03691

PATIENT
  Age: 41 Year
  Sex: Female
  Weight: 61.2 kg

DRUGS (4)
  1. GILENYA [Suspect]
     Dosage: 0.5 MG, QD, ORAL
     Route: 048
  2. CLARINEX-D (DESLORATADINE, PSEUDOEPHEDRINE SULFATE) [Concomitant]
  3. MOTRIN [Concomitant]
  4. LYRICA (PREGABALIN) [Concomitant]

REACTIONS (3)
  - MUSCULOSKELETAL PAIN [None]
  - ARTHRALGIA [None]
  - Hypertension [None]
